FAERS Safety Report 8378728-0 (Version None)
Quarter: 2012Q2

REPORT INFORMATION
  Report Type: 
  Country: None (occurrence: None)
  Receive Date: 20120522
  Receipt Date: 20120521
  Transmission Date: 20120825
  Serious: No
  Sender: FDA-Public Use
  Company Number: CHPA2012US010565

PATIENT
  Sex: Female

DRUGS (1)
  1. PREVACID 24 HR [Suspect]
     Indication: GASTROOESOPHAGEAL REFLUX DISEASE
     Dosage: UNK, UNK
     Route: 048
     Dates: start: 20090101

REACTIONS (3)
  - OFF LABEL USE [None]
  - NO ADVERSE EVENT [None]
  - INCORRECT DRUG ADMINISTRATION DURATION [None]
